FAERS Safety Report 12781715 (Version 3)
Quarter: 2016Q4

REPORT INFORMATION
  Report Type: Spontaneous
  Country: MX (occurrence: MX)
  Receive Date: 20160926
  Receipt Date: 20161012
  Transmission Date: 20170207
  Serious: Yes (Other)
  Sender: FDA-Public Use
  Company Number: MX-009507513-1608MEX003054

PATIENT
  Age: 62 Year
  Sex: Male
  Weight: 85.5 kg

DRUGS (4)
  1. BRIDION [Suspect]
     Active Substance: SUGAMMADEX
     Indication: NEUROMUSCULAR BLOCKADE REVERSAL
     Dosage: 200MG (100 MG/ML, 2 ML)
     Route: 042
     Dates: start: 20160801, end: 20160801
  2. ESMERON [Suspect]
     Active Substance: ROCURONIUM BROMIDE
     Dosage: UNKNOWN
     Dates: start: 20160801
  3. METRONIDAZOLE. [Concomitant]
     Active Substance: METRONIDAZOLE
     Indication: PREMEDICATION
     Dosage: UNK UNK, UNKNOWN
     Route: 048
     Dates: start: 20160801, end: 20160801
  4. CIPROFLOXACIN. [Concomitant]
     Active Substance: CIPROFLOXACIN
     Indication: PREMEDICATION
     Dosage: UNK UNK, UNKNOWN
     Route: 048
     Dates: start: 20160801, end: 20160801

REACTIONS (1)
  - Drug hypersensitivity [Recovered/Resolved]

NARRATIVE: CASE EVENT DATE: 20160801
